FAERS Safety Report 5806756-5 (Version None)
Quarter: 2008Q3

REPORT INFORMATION
  Report Type: 
  Country: None (occurrence: None)
  Receive Date: 20080709
  Receipt Date: 20080709
  Transmission Date: 20090109
  Serious: Yes (Life-Threatening, Hospitalization, Disabling, Other)
  Sender: FDA-Public Use
  Company Number: None

PATIENT
  Age: 90 Year
  Sex: Male
  Weight: 97.5234 kg

DRUGS (2)
  1. DIGOXIN -YELLOW- 0.125 MG [Suspect]
     Indication: ARRHYTHMIA
     Dosage: ONE TABLE DAILY
  2. DIGOXIN -YELLOW- 0.125 MG [Suspect]
     Indication: CARDIAC FAILURE CONGESTIVE
     Dosage: ONE TABLE DAILY

REACTIONS (9)
  - APATHY [None]
  - ARRHYTHMIA [None]
  - CARDIAC ARREST [None]
  - DIARRHOEA [None]
  - FATIGUE [None]
  - NAUSEA [None]
  - THERAPEUTIC AGENT TOXICITY [None]
  - VENTRICULAR FIBRILLATION [None]
  - VOMITING [None]
